FAERS Safety Report 19998054 (Version 1)
Quarter: 2021Q4

REPORT INFORMATION
  Report Type: Spontaneous
  Country: US (occurrence: US)
  Receive Date: 20211026
  Receipt Date: 20211026
  Transmission Date: 20220303
  Serious: Yes (Other)
  Sender: FDA-Public Use
  Company Number: US-ELI_LILLY_AND_COMPANY-US202110005614

PATIENT
  Sex: Female

DRUGS (2)
  1. BARICITINIB [Suspect]
     Active Substance: BARICITINIB
     Indication: COVID-19
     Dosage: 2 MG, DAILY
     Route: 065
     Dates: start: 20210927
  2. BARICITINIB [Suspect]
     Active Substance: BARICITINIB
     Dosage: 4 MG, DAILY
     Route: 065
     Dates: end: 20211008

REACTIONS (1)
  - Thrombotic stroke [Unknown]
